FAERS Safety Report 10669679 (Version 1)
Quarter: 2014Q4

REPORT INFORMATION
  Report Type: Spontaneous
  Country: US (occurrence: US)
  Receive Date: 20141222
  Receipt Date: 20141222
  Transmission Date: 20150529
  Serious: No
  Sender: FDA-Public Use
  Company Number: US-GLAXOSMITHKLINE-A1063368A

PATIENT

DRUGS (3)
  1. TYLENOL [Concomitant]
     Active Substance: ACETAMINOPHEN
  2. AVODART [Suspect]
     Active Substance: DUTASTERIDE
     Indication: PROSTATOMEGALY
     Route: 048
     Dates: start: 2009
  3. VICODIN [Concomitant]
     Active Substance: ACETAMINOPHEN\HYDROCODONE BITARTRATE

REACTIONS (2)
  - Ejaculation disorder [Recovering/Resolving]
  - Semen volume decreased [Unknown]
